FAERS Safety Report 7508494-X (Version None)
Quarter: 2011Q2

REPORT INFORMATION
  Report Type: 
  Country: None (occurrence: None)
  Receive Date: 20110527
  Receipt Date: 20110518
  Transmission Date: 20111010
  Serious: Yes (Hospitalization)
  Sender: FDA-Public Use
  Company Number: US-AMGEN-USASP2011025812

PATIENT
  Age: 61 Year
  Sex: Female

DRUGS (1)
  1. ENBREL [Suspect]
     Indication: PSORIASIS
     Dosage: 50 MG, QWK
     Dates: start: 20060101

REACTIONS (6)
  - IMPAIRED HEALING [None]
  - MOBILITY DECREASED [None]
  - BACTERIAL INFECTION [None]
  - CAROTID ARTERY OCCLUSION [None]
  - PERICARDIAL EFFUSION [None]
  - CYANOSIS [None]
